FAERS Safety Report 10030062 (Version 1)
Quarter: 2014Q1

REPORT INFORMATION
  Report Type: Spontaneous
  Country: US (occurrence: US)
  Receive Date: 20140323
  Receipt Date: 20140323
  Transmission Date: 20141002
  Serious: No
  Sender: FDA-Public Use
  Company Number: US-ALLERGAN-1303985US

PATIENT
  Age: 61 Year
  Sex: Female

DRUGS (4)
  1. LATISSE 0.03% [Suspect]
     Indication: GROWTH OF EYELASHES
     Dosage: 2 GTT, UNK
     Route: 061
     Dates: start: 201303, end: 201303
  2. VIVELLE DOT [Concomitant]
     Indication: HORMONE REPLACEMENT THERAPY
     Dosage: UNK
  3. GENTEAL EYE DROPS NOS [Concomitant]
     Indication: EYE LUBRICATION THERAPY
     Dosage: 2 GTT, BID
     Route: 047
  4. ZATADOR                       /00495202/ [Concomitant]
     Indication: EYE ALLERGY
     Dosage: 2 GTT, UNK
     Route: 047

REACTIONS (5)
  - Pruritus [Recovering/Resolving]
  - Wrong technique in drug usage process [Unknown]
  - Eye irritation [Recovering/Resolving]
  - Erythema of eyelid [Recovering/Resolving]
  - Eyelid oedema [Recovering/Resolving]
